FAERS Safety Report 8117380 (Version 2)
Quarter: 2014Q2

REPORT INFORMATION
  Report Type: Spontaneous
  Country: US (occurrence: US)
  Receive Date: 20110901
  Receipt Date: 20140403
  Transmission Date: 20141212
  Serious: Yes (Hospitalization)
  Sender: FDA-Public Use
  Company Number: US-GLAXOSMITHKLINE-A0802283A

PATIENT
  Age: 62 Year
  Sex: Male
  Weight: 84.5 kg

DRUGS (14)
  1. AVANDIA [Suspect]
     Indication: DIABETES MELLITUS
     Dosage: 4MG PER DAY
     Route: 048
     Dates: start: 199906, end: 200609
  2. GLUCOPHAGE [Concomitant]
  3. GLUCOTROL [Concomitant]
  4. TOPROL XL [Concomitant]
  5. LISINOPRIL [Concomitant]
  6. LASIX [Concomitant]
  7. IMDUR [Concomitant]
  8. LIPITOR [Concomitant]
  9. COUMADIN [Concomitant]
  10. KLOR-CON [Concomitant]
  11. ADVAIR [Concomitant]
  12. COMBIVENT [Concomitant]
  13. ATARAX [Concomitant]
  14. ZANTAC [Concomitant]

REACTIONS (4)
  - Myocardial infarction [Not Recovered/Not Resolved]
  - Cerebrovascular accident [Unknown]
  - Transient ischaemic attack [Unknown]
  - Cardiac failure congestive [Unknown]
